FAERS Safety Report 9207401 (Version 2)
Quarter: 2013Q2

REPORT INFORMATION
  Report Type: Spontaneous
  Country: JP (occurrence: JP)
  Receive Date: 20130403
  Receipt Date: 20130424
  Transmission Date: 20140414
  Serious: No
  Sender: FDA-Public Use
  Company Number: JP-ELI_LILLY_AND_COMPANY-JP201303005489

PATIENT
  Age: 76 Year
  Sex: Female

DRUGS (7)
  1. FORTEO [Suspect]
     Indication: OSTEOPOROSIS
     Dosage: UNK UNK, QD
     Route: 058
     Dates: start: 20130314, end: 20130401
  2. PLETAAL [Concomitant]
     Dosage: 50 MG, EACH MORNING
     Route: 048
     Dates: start: 20130327
  3. MUCOSTA [Concomitant]
     Dosage: 1 DF, TID
     Route: 047
     Dates: start: 20121222
  4. LAC-B [Concomitant]
     Dosage: 1 G, TID
     Dates: start: 20121222
  5. MOHRUS [Concomitant]
     Dosage: 1 DF, QD
     Route: 062
     Dates: start: 20130402
  6. DEPAS [Concomitant]
     Dosage: 1 DF, TID
     Route: 048
     Dates: start: 20100612
  7. ASPIRIN [Concomitant]
     Dosage: 1 DF, QD
     Route: 048
     Dates: start: 20091226

REACTIONS (7)
  - Amnesia [Not Recovered/Not Resolved]
  - Decreased appetite [Not Recovered/Not Resolved]
  - Arthralgia [Unknown]
  - Joint swelling [Unknown]
  - Dyspnoea [Unknown]
  - Herpes virus infection [Unknown]
  - Nausea [Not Recovered/Not Resolved]
